FAERS Safety Report 21027693 (Version 1)
Quarter: 2022Q2

REPORT INFORMATION
  Report Type: Spontaneous
  Country: US (occurrence: None)
  Receive Date: 20220630
  Receipt Date: 20220630
  Transmission Date: 20220721
  Serious: Yes (Hospitalization)
  Sender: FDA-Public Use
  Company Number: None

PATIENT
  Sex: Male
  Weight: 79.8 kg

DRUGS (4)
  1. MERCAPTOPURINE [Suspect]
     Active Substance: MERCAPTOPURINE
  2. METHOTREXATE [Concomitant]
  3. PREDNISONE [Concomitant]
     Active Substance: PREDNISONE
  4. VINCRISTINE SULFATE [Concomitant]

REACTIONS (5)
  - COVID-19 [None]
  - SARS-CoV-2 test positive [None]
  - Pneumonia [None]
  - Bronchitis [None]
  - Neutropenia [None]

NARRATIVE: CASE EVENT DATE: 20220627
